FAERS Safety Report 5191276-4 (Version None)
Quarter: 2006Q4

REPORT INFORMATION
  Report Type: 
  Country: None (occurrence: None)
  Receive Date: 20061220
  Receipt Date: 20061220
  Transmission Date: 20070319
  Serious: Yes (Other)
  Sender: FDA-Public Use
  Company Number: None

PATIENT
  Sex: Female

DRUGS (2)
  1. ACCUTANE [Suspect]
     Indication: ACNE CYSTIC
     Dosage: 40 MG TWICE DAILY
     Dates: start: 20001101
  2. ACCUTANE [Suspect]
     Indication: SEBACEOUS GLAND DISORDER
     Dosage: 40 MG TWICE DAILY
     Dates: start: 20001101

REACTIONS (2)
  - FUNGAL INFECTION [None]
  - PHARMACEUTICAL PRODUCT COMPLAINT [None]
